FAERS Safety Report 8162516-4 (Version None)
Quarter: 2012Q1

REPORT INFORMATION
  Report Type: 
  Country: None (occurrence: None)
  Receive Date: 20120224
  Receipt Date: 20120214
  Transmission Date: 20120608
  Serious: Yes (Hospitalization)
  Sender: FDA-Public Use
  Company Number: US-JNJFOC-20110102669

PATIENT
  Age: 23 Year
  Sex: Female

DRUGS (2)
  1. ACETAMINOPHEN [Suspect]
  2. ACETAMINOPHEN [Suspect]
     Indication: PRODUCT USED FOR UNKNOWN INDICATION

REACTIONS (3)
  - INTRACRANIAL PRESSURE INCREASED [None]
  - TOXICITY TO VARIOUS AGENTS [None]
  - ACUTE HEPATIC FAILURE [None]
